FAERS Safety Report 19609650 (Version 3)
Quarter: 2022Q1

REPORT INFORMATION
  Report Type: Report from Study
  Country: FR (occurrence: FR)
  Receive Date: 20210726
  Receipt Date: 20220315
  Transmission Date: 20220424
  Serious: Yes (Death, Hospitalization, Other)
  Sender: FDA-Public Use
  Company Number: FR-NOVPHSZ-PHHY2019FR108235

PATIENT
  Age: 76 Year
  Sex: Male
  Weight: 75 kg

DRUGS (61)
  1. VALGANCICLOVIR [Suspect]
     Active Substance: VALGANCICLOVIR
     Indication: Prophylaxis
     Dosage: 450 MILLIGRAM, QOD (450 MG EVERY OTHER DAY)
     Route: 065
     Dates: start: 20190322, end: 20190705
  2. VALGANCICLOVIR [Suspect]
     Active Substance: VALGANCICLOVIR
     Dosage: 450 MILLIGRAM, QD
     Route: 065
  3. TACROLIMUS [Suspect]
     Active Substance: TACROLIMUS
     Indication: Renal transplant
     Dosage: 3 MILLIGRAM
     Route: 048
     Dates: start: 20190601
  4. TACROLIMUS [Suspect]
     Active Substance: TACROLIMUS
     Dosage: 4 MILLIGRAM
     Route: 048
     Dates: start: 20190409, end: 20190425
  5. TACROLIMUS [Suspect]
     Active Substance: TACROLIMUS
     Dosage: 3 MILLIGRAM
     Route: 048
     Dates: start: 20190601, end: 20190830
  6. TACROLIMUS [Suspect]
     Active Substance: TACROLIMUS
     Dosage: 9 MILLIGRAM
     Route: 048
     Dates: start: 20190327, end: 20190328
  7. TACROLIMUS [Suspect]
     Active Substance: TACROLIMUS
     Dosage: 2 MILLIGRAM
     Route: 048
     Dates: start: 20190504, end: 20190601
  8. TACROLIMUS [Suspect]
     Active Substance: TACROLIMUS
     Dosage: 2 MILLIGRAM
     Route: 048
     Dates: start: 20190321
  9. TACROLIMUS [Suspect]
     Active Substance: TACROLIMUS
     Dosage: 10 MILLIGRAM
     Route: 048
     Dates: start: 20190321
  10. TACROLIMUS [Suspect]
     Active Substance: TACROLIMUS
     Dosage: 8 MILLIGRAM
     Route: 048
     Dates: start: 20190328, end: 20190330
  11. TACROLIMUS [Suspect]
     Active Substance: TACROLIMUS
     Dosage: 3 MILLIGRAM
     Route: 048
     Dates: start: 20190321
  12. TACROLIMUS [Suspect]
     Active Substance: TACROLIMUS
     Dosage: 11 MILLIGRAM
     Route: 048
     Dates: start: 20190321
  13. TACROLIMUS [Suspect]
     Active Substance: TACROLIMUS
     Dosage: 3 MILLIGRAM
     Route: 048
     Dates: start: 20190425, end: 20190504
  14. TACROLIMUS [Suspect]
     Active Substance: TACROLIMUS
     Dosage: 9.5 MILLIGRAM
     Route: 048
     Dates: start: 20190402, end: 20190406
  15. TACROLIMUS [Suspect]
     Active Substance: TACROLIMUS
     Dosage: 5 MILLIGRAM
     Route: 048
     Dates: start: 20190321, end: 20190322
  16. TACROLIMUS [Suspect]
     Active Substance: TACROLIMUS
     Dosage: 3 MILLIGRAM
     Route: 048
     Dates: start: 20190830
  17. TACROLIMUS [Suspect]
     Active Substance: TACROLIMUS
     Dosage: 7 MILLIGRAM
     Route: 048
     Dates: start: 20190406, end: 20190409
  18. TACROLIMUS [Suspect]
     Active Substance: TACROLIMUS
     Dosage: 9 MILLIGRAM
     Route: 048
     Dates: start: 20190330, end: 20190401
  19. TACROLIMUS [Suspect]
     Active Substance: TACROLIMUS
     Dosage: 7 MILLIGRAM
     Route: 048
     Dates: start: 20190321
  20. TACROLIMUS [Suspect]
     Active Substance: TACROLIMUS
     Dosage: 9 MILLIGRAM
     Route: 048
     Dates: start: 20190401, end: 20190402
  21. TACROLIMUS [Suspect]
     Active Substance: TACROLIMUS
     Dosage: 10 MILLIGRAM
     Route: 048
     Dates: start: 20190324, end: 20190327
  22. TACROLIMUS [Suspect]
     Active Substance: TACROLIMUS
     Dosage: 11 MILLIGRAM
     Route: 048
     Dates: start: 20190322, end: 20190324
  23. TACROLIMUS [Suspect]
     Active Substance: TACROLIMUS
     Dosage: 3 MILLIGRAM
     Route: 048
     Dates: start: 20190830
  24. TACROLIMUS [Suspect]
     Active Substance: TACROLIMUS
     Dosage: 1 MILLIGRAM
     Route: 048
     Dates: start: 20191111, end: 20191113
  25. TACROLIMUS [Suspect]
     Active Substance: TACROLIMUS
     Dosage: 3 MILLIGRAM
     Route: 048
  26. TACROLIMUS [Suspect]
     Active Substance: TACROLIMUS
     Dosage: 2 MILLIGRAM
     Route: 048
  27. TACROLIMUS [Suspect]
     Active Substance: TACROLIMUS
     Dosage: 9 MILLIGRAM
     Route: 048
     Dates: start: 20190406
  28. TACROLIMUS [Suspect]
     Active Substance: TACROLIMUS
     Dosage: 11 MILLIGRAM
     Route: 048
     Dates: start: 20190324
  29. TACROLIMUS [Suspect]
     Active Substance: TACROLIMUS
     Dosage: 2 MILLIGRAM
     Route: 048
     Dates: start: 20190601
  30. TACROLIMUS [Suspect]
     Active Substance: TACROLIMUS
     Dosage: 11 MILLIGRAM
     Route: 048
  31. TACROLIMUS [Suspect]
     Active Substance: TACROLIMUS
     Dosage: 0.5 MILLIGRAM
     Route: 048
     Dates: start: 20191108, end: 20191111
  32. TACROLIMUS [Suspect]
     Active Substance: TACROLIMUS
     Dosage: 9 MILLIGRAM
     Route: 048
     Dates: start: 20190328
  33. TACROLIMUS [Suspect]
     Active Substance: TACROLIMUS
     Dosage: 1 MILLIGRAM
     Route: 048
     Dates: start: 20190130, end: 20191105
  34. TACROLIMUS [Suspect]
     Active Substance: TACROLIMUS
     Dosage: 5 MILLIGRAM
     Route: 048
     Dates: start: 20190322
  35. TACROLIMUS [Suspect]
     Active Substance: TACROLIMUS
     Dosage: 10 MILLIGRAM
     Route: 048
     Dates: start: 20190327
  36. TACROLIMUS [Suspect]
     Active Substance: TACROLIMUS
     Dosage: 4 MILLIGRAM
     Route: 048
     Dates: start: 20190425
  37. TACROLIMUS [Suspect]
     Active Substance: TACROLIMUS
     Dosage: 2 MILLIGRAM
     Route: 048
     Dates: start: 20190830, end: 20191029
  38. TACROLIMUS [Suspect]
     Active Substance: TACROLIMUS
     Dosage: 0.5 MILLIGRAM
     Route: 048
     Dates: start: 20191119
  39. TACROLIMUS [Suspect]
     Active Substance: TACROLIMUS
     Dosage: 1.5 MILLIGRAM
     Route: 048
     Dates: start: 20191029, end: 20191030
  40. TACROLIMUS [Suspect]
     Active Substance: TACROLIMUS
     Dosage: 7 MILLIGRAM
     Route: 048
     Dates: start: 20190409
  41. TACROLIMUS [Suspect]
     Active Substance: TACROLIMUS
     Dosage: 3 MILLIGRAM
     Route: 048
     Dates: end: 20190504
  42. TACROLIMUS [Suspect]
     Active Substance: TACROLIMUS
     Dosage: 8 MILLIGRAM
     Route: 048
     Dates: start: 20190330
  43. MYFORTIC [Suspect]
     Active Substance: MYCOPHENOLATE SODIUM
     Indication: Prophylaxis against transplant rejection
     Dosage: 1440 MILLIGRAM
     Route: 065
     Dates: start: 20190321, end: 20190406
  44. MYFORTIC [Suspect]
     Active Substance: MYCOPHENOLATE SODIUM
     Dosage: 1080 OT, UNK
     Route: 065
     Dates: start: 20190407
  45. BACTRIM [Suspect]
     Active Substance: SULFAMETHOXAZOLE\TRIMETHOPRIM
     Indication: Pneumocystis jirovecii pneumonia
     Dosage: UNK, QD (400/800MG PER DAY)
     Route: 065
     Dates: start: 20190328, end: 20190705
  46. SOLU-MEDROL [Suspect]
     Active Substance: METHYLPREDNISOLONE SODIUM SUCCINATE
     Indication: Prophylaxis
     Dosage: 500 MILLIGRAM
     Route: 065
     Dates: start: 20190321, end: 20190321
  47. SOLU-MEDROL [Suspect]
     Active Substance: METHYLPREDNISOLONE SODIUM SUCCINATE
     Dosage: 120 MILLIGRAM
     Route: 065
     Dates: start: 20190322, end: 20190322
  48. ACETAMINOPHEN [Concomitant]
     Active Substance: ACETAMINOPHEN
     Indication: Product used for unknown indication
     Dosage: UNK
     Route: 065
     Dates: start: 20190321, end: 20190402
  49. LANSOPRAZOLE [Concomitant]
     Active Substance: LANSOPRAZOLE
     Indication: Product used for unknown indication
     Dosage: UNK
     Route: 065
     Dates: start: 20190322
  50. BISOPROLOL [Concomitant]
     Active Substance: BISOPROLOL
     Indication: Product used for unknown indication
     Dosage: UNK
     Route: 065
     Dates: start: 20190322
  51. NOVORAPID [Concomitant]
     Active Substance: INSULIN ASPART
     Indication: Product used for unknown indication
     Dosage: UNK
     Route: 065
     Dates: start: 20190322, end: 20190424
  52. PHLOROGLUCINOL [Concomitant]
     Active Substance: PHLOROGLUCINOL
     Indication: Product used for unknown indication
     Dosage: UNK
     Route: 065
     Dates: start: 20190321, end: 20190326
  53. PRAVASTATIN [Concomitant]
     Active Substance: PRAVASTATIN
     Indication: Product used for unknown indication
     Dosage: UNK
     Route: 065
     Dates: start: 20190322, end: 20190408
  54. NEFOPAM [Concomitant]
     Active Substance: NEFOPAM
     Indication: Product used for unknown indication
     Dosage: UNK
     Route: 065
     Dates: start: 20190327, end: 20190407
  55. OXYBUTYNIN CHLORIDE [Concomitant]
     Active Substance: OXYBUTYNIN CHLORIDE
     Indication: Product used for unknown indication
     Dosage: UNK
     Route: 065
     Dates: start: 20190321, end: 20190330
  56. PREDNISONE [Concomitant]
     Active Substance: PREDNISONE
     Indication: Product used for unknown indication
     Dosage: UNK
     Route: 065
     Dates: start: 20190323
  57. TRAMADOL [Concomitant]
     Active Substance: TRAMADOL
     Indication: Product used for unknown indication
     Dosage: UNK
     Route: 065
     Dates: start: 20190321, end: 20190321
  58. LANTUS [Concomitant]
     Active Substance: INSULIN GLARGINE
     Indication: Product used for unknown indication
     Dosage: UNK
     Route: 065
     Dates: start: 20190326
  59. CALCIPARINE [Concomitant]
     Active Substance: HEPARIN CALCIUM
     Indication: Product used for unknown indication
     Dosage: UNK
     Route: 065
     Dates: start: 20190325, end: 20190409
  60. ARANESP [Concomitant]
     Active Substance: DARBEPOETIN ALFA
     Indication: Product used for unknown indication
     Dosage: UNK
     Route: 065
     Dates: start: 20190322
  61. VORICONAZOLE [Concomitant]
     Active Substance: VORICONAZOLE
     Indication: Product used for unknown indication
     Dosage: UNK
     Route: 065
     Dates: start: 20191028

REACTIONS (17)
  - Haemorrhagic stroke [Fatal]
  - Acute kidney injury [Recovered/Resolved]
  - Renal artery stenosis [Recovered/Resolved]
  - Bronchopulmonary aspergillosis [Recovering/Resolving]
  - Atrial fibrillation [Not Recovered/Not Resolved]
  - Escherichia urinary tract infection [Recovered/Resolved]
  - Neutropenia [Recovered/Resolved]
  - Thrombocytopenia [Recovered/Resolved]
  - Localised oedema [Recovered/Resolved]
  - Oedema peripheral [Recovered/Resolved]
  - Cough [Recovered/Resolved]
  - Hyperglycaemia [Recovering/Resolving]
  - Hypertension [Recovering/Resolving]
  - Metabolic acidosis [Not Recovered/Not Resolved]
  - Diarrhoea [Recovered/Resolved]
  - Abdominal pain [Recovered/Resolved]
  - Chest pain [Recovered/Resolved]

NARRATIVE: CASE EVENT DATE: 20190321
